FAERS Safety Report 9785366 (Version 9)
Quarter: 2014Q3

REPORT INFORMATION
  Report Type: Report from Study
  Country: DE (occurrence: DE)
  Receive Date: 20131227
  Receipt Date: 20140910
  Transmission Date: 20150326
  Serious: Yes (Hospitalization)
  Sender: FDA-Public Use
  Company Number: DE-ROCHE-1322129

PATIENT
  Age: 74 Year
  Sex: Female
  Weight: 57 kg

DRUGS (13)
  1. PANTOZOL [Concomitant]
     Active Substance: PANTOPRAZOLE SODIUM
  2. L-THYROXIN [Concomitant]
     Active Substance: LEVOTHYROXINE SODIUM
     Route: 065
     Dates: start: 20131001
  3. VEMURAFENIB [Suspect]
     Active Substance: VEMURAFENIB
     Dosage: LAST DOSE PRIOR TO SAE ON 15/JUN/2012.
     Route: 048
     Dates: start: 20111026
  4. CARVEDILOL. [Concomitant]
     Active Substance: CARVEDILOL
     Route: 065
     Dates: start: 199005
  5. VEMURAFENIB [Suspect]
     Active Substance: VEMURAFENIB
     Dosage: LAST DOSE PRIOR TO SAE 17/MAR/2014
     Route: 048
     Dates: start: 20120616
  6. ALFASON [Concomitant]
     Route: 065
     Dates: start: 20111029
  7. DERMOXIN (GERMANY) [Concomitant]
     Route: 065
     Dates: start: 20111105
  8. L-THYROXIN [Concomitant]
     Active Substance: LEVOTHYROXINE SODIUM
     Route: 065
     Dates: start: 200110
  9. ASPIRIN. [Concomitant]
     Active Substance: ASPIRIN
     Route: 065
     Dates: start: 201309
  10. DERMOXIN (GERMANY) [Concomitant]
     Route: 065
     Dates: start: 20130322
  11. SIMVASTATIN. [Concomitant]
     Active Substance: SIMVASTATIN
     Route: 065
     Dates: end: 201309
  12. VEMURAFENIB [Suspect]
     Active Substance: VEMURAFENIB
     Indication: MALIGNANT MELANOMA
     Dosage: LAST DOSE PRIOR TO SAE ON 06/DEC/2013.
     Route: 048
     Dates: start: 20131118
  13. DICLOFENAC [Concomitant]
     Active Substance: DICLOFENAC
     Route: 065
     Dates: start: 20111206

REACTIONS (1)
  - Leukoplakia [Not Recovered/Not Resolved]

NARRATIVE: CASE EVENT DATE: 20120412
